FAERS Safety Report 15737524 (Version 2)
Quarter: 2019Q1

REPORT INFORMATION
  Report Type: Spontaneous
  Country: FR (occurrence: FR)
  Receive Date: 20181219
  Receipt Date: 20190114
  Transmission Date: 20190417
  Serious: Yes (Other)
  Sender: FDA-Public Use
  Company Number: PHHY2018FR187187

PATIENT
  Age: 67 Year
  Sex: Female

DRUGS (2)
  1. MYCOPHENOLATE MOFETIL. [Suspect]
     Active Substance: MYCOPHENOLATE MOFETIL
     Indication: MICROSCOPIC POLYANGIITIS
     Route: 065
  2. CYCLOPHOSPHAMIDE. [Suspect]
     Active Substance: CYCLOPHOSPHAMIDE
     Indication: MICROSCOPIC POLYANGIITIS
     Route: 042

REACTIONS (3)
  - Varicella zoster virus infection [Recovering/Resolving]
  - Product use in unapproved indication [Unknown]
  - Herpes zoster [Recovering/Resolving]
